FAERS Safety Report 6808627-4 (Version None)
Quarter: 2010Q2

REPORT INFORMATION
  Report Type: 
  Country: None (occurrence: None)
  Receive Date: 20100629
  Receipt Date: 20090915
  Transmission Date: 20101027
  Serious: Yes (Other)
  Sender: FDA-Public Use
  Company Number: US-PFIZER INC-2009246536

PATIENT
  Sex: Male
  Weight: 97.975 kg

DRUGS (7)
  1. VIAGRA [Suspect]
     Dosage: UNK
  2. CIALIS [Suspect]
     Dosage: UNK
  3. PREVACID [Concomitant]
     Dosage: UNK
  4. PLAVIX [Concomitant]
     Dosage: UNK
  5. CENTRUM [Concomitant]
     Dosage: UNK
  6. ZETIA [Concomitant]
     Dosage: UNK
  7. NIASPAN [Concomitant]
     Dosage: UNK

REACTIONS (1)
  - DEAFNESS NEUROSENSORY [None]
